FAERS Safety Report 24435191 (Version 1)
Quarter: 2024Q4

REPORT INFORMATION
  Report Type: Spontaneous
  Country: US (occurrence: US)
  Receive Date: 20241015
  Receipt Date: 20241015
  Transmission Date: 20250115
  Serious: Yes (Hospitalization, Other)
  Sender: CHEPLAPHARM
  Company Number: US-CHEPLA-2024012907

PATIENT
  Age: 21 Year
  Sex: Female

DRUGS (1)
  1. HYDROXYUREA [Suspect]
     Active Substance: HYDROXYUREA
     Indication: Sickle cell disease

REACTIONS (6)
  - Acute respiratory failure [Unknown]
  - Acute chest syndrome [Unknown]
  - Pain in extremity [Unknown]
  - Lung opacity [Unknown]
  - Barotrauma [Unknown]
  - Treatment noncompliance [Unknown]
